FAERS Safety Report 4837508-0 (Version None)
Quarter: 2005Q4

REPORT INFORMATION
  Report Type: 
  Country: None (occurrence: None)
  Receive Date: 20051128
  Receipt Date: 20051122
  Transmission Date: 20060501
  Serious: Yes (Hospitalization)
  Sender: FDA-Public Use
  Company Number: FR-GLAXOSMITHKLINE-B0401338A

PATIENT
  Age: 21 Year
  Sex: Female
  Weight: 25 kg

DRUGS (3)
  1. ZINNAT [Suspect]
     Route: 048
     Dates: start: 20050928, end: 20051006
  2. CEFAMANDOLE NAFATE [Suspect]
     Dosage: 60MGK PER DAY
     Route: 042
     Dates: start: 20050826, end: 20050928
  3. DOLIPRANE [Concomitant]
     Route: 048
     Dates: start: 20050826, end: 20050928

REACTIONS (7)
  - ALANINE AMINOTRANSFERASE INCREASED [None]
  - ASPARTATE AMINOTRANSFERASE INCREASED [None]
  - ASTHENIA [None]
  - BLOOD BILIRUBIN INCREASED [None]
  - CHOLESTASIS [None]
  - HEPATOCELLULAR DAMAGE [None]
  - JAUNDICE [None]
